FAERS Safety Report 6194067-0 (Version None)
Quarter: 2009Q2

REPORT INFORMATION
  Report Type: 
  Country: None (occurrence: None)
  Receive Date: 20090518
  Receipt Date: 20090518
  Transmission Date: 20091009
  Serious: Yes (Disabling)
  Sender: FDA-Public Use
  Company Number: US-B.I. PHARMACEUTICALS,INC./RIDGEFIELD-2009-BP-04424PF

PATIENT
  Sex: Female

DRUGS (2)
  1. SPIRIVA [Suspect]
     Dates: start: 20090201
  2. NEURONTIN [Concomitant]
     Indication: CEREBROVASCULAR ACCIDENT
     Dosage: 6400MG

REACTIONS (2)
  - DISABILITY [None]
  - LOSS OF EMPLOYMENT [None]
